FAERS Safety Report 9558921 (Version 1)
Quarter: 2013Q3

REPORT INFORMATION
  Report Type: Spontaneous
  Country: US (occurrence: US)
  Receive Date: 20130927
  Receipt Date: 20130927
  Transmission Date: 20140515
  Serious: Yes (Other)
  Sender: FDA-Public Use
  Company Number: US-009507513-1309USA011710

PATIENT
  Age: 72 Year
  Sex: Female

DRUGS (1)
  1. FOSAMAX [Suspect]
     Indication: OSTEOPOROSIS
     Dosage: 1 DF, ONCE A WEEK
     Route: 048
     Dates: start: 2005, end: 2008

REACTIONS (2)
  - Gastric cancer [Not Recovered/Not Resolved]
  - Surgery [Unknown]
